FAERS Safety Report 15947696 (Version 1)
Quarter: 2019Q1

REPORT INFORMATION
  Report Type: Report from Study
  Country: US (occurrence: US)
  Receive Date: 20190211
  Receipt Date: 20190211
  Transmission Date: 20190417
  Serious: Yes (Hospitalization)
  Sender: FDA-Public Use
  Company Number: US-EISAI MEDICAL RESEARCH-EC-2019-050084

PATIENT
  Age: 20 Year
  Sex: Female

DRUGS (3)
  1. LENVIMA [Suspect]
     Active Substance: LENVATINIB
     Indication: METASTASES TO LUNG
     Route: 048
     Dates: start: 20181226, end: 20190110
  2. LOSARTAN. [Concomitant]
     Active Substance: LOSARTAN
  3. ENOXAPARIN [Concomitant]
     Active Substance: ENOXAPARIN

REACTIONS (7)
  - Haemoglobin decreased [Recovered/Resolved]
  - Decreased appetite [Not Recovered/Not Resolved]
  - Blood pressure abnormal [Recovering/Resolving]
  - Fatigue [Not Recovered/Not Resolved]
  - Diarrhoea [Not Recovered/Not Resolved]
  - Epistaxis [Not Recovered/Not Resolved]
  - Tumour pain [Recovering/Resolving]

NARRATIVE: CASE EVENT DATE: 201901
